FAERS Safety Report 5207705-3 (Version None)
Quarter: 2006Q4

REPORT INFORMATION
  Report Type: 
  Country: None (occurrence: None)
  Receive Date: 20061030
  Receipt Date: 20060614
  Transmission Date: 20070319
  Serious: No
  Sender: FDA-Public Use
  Company Number: 2006CT000668

PATIENT
  Age: 71 Year
  Sex: Male
  Weight: 92.9874 kg

DRUGS (9)
  1. VENTAVIS [Suspect]
     Indication: PULMONARY HYPERTENSION
     Dosage: 5 UG; 6 TO 9 X/DAY; INH
     Route: 055
     Dates: start: 20060524, end: 20060614
  2. WARFARIN SODIUM [Concomitant]
  3. LASIX [Concomitant]
  4. ZAROXOLYN [Concomitant]
  5. VITAMIN CAP [Concomitant]
  6. POTASSIUM CHLORIDE [Concomitant]
  7. DIGOXIN [Concomitant]
  8. BOTOX [Concomitant]
  9. OXYGEN [Concomitant]

REACTIONS (1)
  - JOINT SWELLING [None]
